FAERS Safety Report 16449949 (Version 2)
Quarter: 2019Q2

REPORT INFORMATION
  Report Type: Report from Study
  Country: AT (occurrence: AT)
  Receive Date: 20190619
  Receipt Date: 20190627
  Transmission Date: 20190711
  Serious: Yes (Other)
  Sender: FDA-Public Use
  Company Number: AT-BAYER-2019-099155

PATIENT
  Age: 27 Year
  Sex: Female

DRUGS (3)
  1. JAYDESS [Suspect]
     Active Substance: LEVONORGESTREL
     Indication: MENORRHAGIA
  2. JAYDESS [Suspect]
     Active Substance: LEVONORGESTREL
     Indication: CONTRACEPTION
     Dosage: 14 MCG/24HR, CONT
     Route: 015
     Dates: start: 20190123, end: 20190517
  3. JAYDESS [Suspect]
     Active Substance: LEVONORGESTREL
     Indication: DYSMENORRHOEA

REACTIONS (5)
  - Dizziness [Recovered/Resolved]
  - Mood swings [Recovered/Resolved]
  - Alopecia [Recovered/Resolved]
  - Migraine [Recovered/Resolved]
  - Genital haemorrhage [Recovered/Resolved]

NARRATIVE: CASE EVENT DATE: 201901
